FAERS Safety Report 7059706-0 (Version None)
Quarter: 2010Q4

REPORT INFORMATION
  Report Type: 
  Country: None (occurrence: None)
  Receive Date: 20101025
  Receipt Date: 20101022
  Transmission Date: 20110411
  Serious: Yes (Hospitalization)
  Sender: FDA-Public Use
  Company Number: IT-BRISTOL-MYERS SQUIBB COMPANY-15346349

PATIENT
  Sex: Male

DRUGS (1)
  1. KARVEZIDE [Suspect]
     Dates: start: 20000101

REACTIONS (1)
  - ANAEMIA [None]
